FAERS Safety Report 11128520 (Version 2)
Quarter: 2015Q2

REPORT INFORMATION
  Report Type: Spontaneous
  Country: US (occurrence: US)
  Receive Date: 20150521
  Receipt Date: 20150609
  Transmission Date: 20150821
  Serious: Yes (Hospitalization, Other)
  Sender: FDA-Public Use
  Company Number: US-009507513-1201USA01079

PATIENT
  Sex: Female
  Weight: 98 kg

DRUGS (6)
  1. FOSAMAX PLUS D [Suspect]
     Active Substance: ALENDRONATE SODIUM\CHOLECALCIFEROL
     Indication: BONE DENSITY DECREASED
     Dosage: UNK 2800, QW
     Route: 048
     Dates: start: 2007, end: 2009
  2. FOSAMAX [Suspect]
     Active Substance: ALENDRONATE SODIUM
     Indication: BONE DENSITY DECREASED
     Dosage: 70 MG, QW
     Route: 048
     Dates: start: 1998, end: 20100427
  3. FOSAMAX [Suspect]
     Active Substance: ALENDRONATE SODIUM
     Route: 048
  4. ALENDRONATE SODIUM. [Suspect]
     Active Substance: ALENDRONATE SODIUM
     Indication: BONE DENSITY DECREASED
     Dosage: 70 MG, QW
     Route: 048
     Dates: start: 2009, end: 20120627
  5. FOSAMAX [Suspect]
     Active Substance: ALENDRONATE SODIUM
     Indication: OSTEOPOROSIS
     Dosage: 10 MG, QD
     Route: 048
     Dates: start: 19991223, end: 20001017
  6. ONE-A-DAY ESSENTIAL VITAMINS [Concomitant]
     Dosage: 1 DF, QD
     Dates: start: 1985, end: 2006

REACTIONS (38)
  - Knee arthroplasty [Unknown]
  - Bursitis [Recovering/Resolving]
  - X-ray limb abnormal [Unknown]
  - Plantar fasciitis [Unknown]
  - Bladder prolapse [Unknown]
  - Osteopenia [Unknown]
  - Exostosis [Unknown]
  - Gastrooesophageal reflux disease [Unknown]
  - Tibia fracture [Unknown]
  - Cardiac valve disease [Unknown]
  - Nail operation [Unknown]
  - Onychomycosis [Unknown]
  - Carotid artery stenosis [Unknown]
  - Femur fracture [Unknown]
  - Intramedullary rod insertion [Unknown]
  - Osteotomy [Unknown]
  - Hypercholesterolaemia [Unknown]
  - Weight increased [Unknown]
  - Hypothyroidism [Unknown]
  - Intramedullary rod insertion [Unknown]
  - Arthroscopy [Unknown]
  - Essential hypertension [Unknown]
  - Carpal tunnel decompression [Unknown]
  - Limb asymmetry [Unknown]
  - Device failure [Unknown]
  - Plantar fasciitis [Unknown]
  - Contusion [Unknown]
  - Device breakage [Unknown]
  - Oedema peripheral [Unknown]
  - Ingrowing nail [Unknown]
  - Back disorder [Unknown]
  - Hypertrophic scar [Unknown]
  - Arthroscopy [Unknown]
  - Device failure [Unknown]
  - Venous occlusion [Unknown]
  - Femur fracture [Unknown]
  - Peripheral nerve decompression [Unknown]
  - Varicose vein [Unknown]

NARRATIVE: CASE EVENT DATE: 2001
